FAERS Safety Report 9278661 (Version 1)
Quarter: 2013Q2

REPORT INFORMATION
  Report Type: Spontaneous
  Country: US (occurrence: US)
  Receive Date: 20130508
  Receipt Date: 20130508
  Transmission Date: 20140414
  Serious: Yes (Other)
  Sender: FDA-Public Use
  Company Number: US-ASTRAZENECA-2013SE30335

PATIENT
  Age: 60 Year
  Sex: Female

DRUGS (1)
  1. BRILINTA [Suspect]
     Indication: ARTERIAL STENT INSERTION
     Route: 048
     Dates: start: 2013, end: 2013

REACTIONS (4)
  - Bradycardia [Unknown]
  - Tachycardia [Unknown]
  - Coronary artery occlusion [Unknown]
  - Dyspnoea [Unknown]
